FAERS Safety Report 16280470 (Version 1)
Quarter: 2019Q2

REPORT INFORMATION
  Report Type: Report from Study
  Country: FI (occurrence: FI)
  Receive Date: 20190507
  Receipt Date: 20190507
  Transmission Date: 20190711
  Serious: Yes (Death)
  Sender: FDA-Public Use
  Company Number: FI-TEVA-2019-FI-1046678

PATIENT
  Age: 48 Year
  Sex: Female

DRUGS (12)
  1. LEVOMEPROMAZINE [Interacting]
     Active Substance: LEVOMEPROMAZINE
     Route: 065
  2. DESMETHYLDIAZEPAM [Interacting]
     Active Substance: NORDAZEPAM
     Route: 065
  3. CODEINE [Concomitant]
     Active Substance: CODEINE
     Route: 065
  4. CHLORDIAZEPOXIDE. [Interacting]
     Active Substance: CHLORDIAZEPOXIDE
     Route: 065
  5. DEMOXEPAM. [Interacting]
     Active Substance: DEMOXEPAM
     Route: 065
  6. CYCLIZINE [Concomitant]
     Active Substance: CYCLIZINE
     Route: 065
  7. CAFFEINE. [Concomitant]
     Active Substance: CAFFEINE
     Route: 065
  8. CITALOPRAM [Suspect]
     Active Substance: CITALOPRAM HYDROBROMIDE
     Route: 065
  9. NORTRIPTYLINE [Concomitant]
     Active Substance: NORTRIPTYLINE
     Route: 065
  10. OXAZEPAM. [Interacting]
     Active Substance: OXAZEPAM
     Route: 065
  11. AMITRIPTYLINE [Suspect]
     Active Substance: AMITRIPTYLINE
     Route: 065
  12. IBUPROFEN. [Concomitant]
     Active Substance: IBUPROFEN
     Route: 065

REACTIONS (3)
  - Electrocardiogram QT prolonged [Fatal]
  - Drug interaction [Fatal]
  - Toxicity to various agents [Fatal]
